FAERS Safety Report 8370605-4 (Version None)
Quarter: 2012Q2

REPORT INFORMATION
  Report Type: 
  Country: None (occurrence: None)
  Receive Date: 20120518
  Receipt Date: 20120515
  Transmission Date: 20120825
  Serious: No
  Sender: FDA-Public Use
  Company Number: US-PFIZER INC-2012118152

PATIENT
  Sex: Male

DRUGS (2)
  1. EFFEXOR XR [Suspect]
  2. ZOLOFT [Suspect]

REACTIONS (1)
  - MENTAL DISORDER [None]
